FAERS Safety Report 18806820 (Version 3)
Quarter: 2021Q2

REPORT INFORMATION
  Report Type: Spontaneous
  Country: US (occurrence: US)
  Receive Date: 20210128
  Receipt Date: 20210609
  Transmission Date: 20210717
  Serious: Yes (Other)
  Sender: FDA-Public Use
  Company Number: US-GILEAD-2021-0513423

PATIENT
  Sex: Male
  Weight: 65.7 kg

DRUGS (3)
  1. VIREAD [Suspect]
     Active Substance: TENOFOVIR DISOPROXIL FUMARATE
     Indication: HIV INFECTION
     Dosage: UNK
     Route: 048
     Dates: start: 2006
  2. JULUCA [Concomitant]
     Active Substance: DOLUTEGRAVIR SODIUM\RILPIVIRINE HYDROCHLORIDE
  3. VIREAD [Suspect]
     Active Substance: TENOFOVIR DISOPROXIL FUMARATE
     Dosage: UNK
     Route: 048
     Dates: start: 2003, end: 2013

REACTIONS (10)
  - Hip fracture [Unknown]
  - Renal failure [Not Recovered/Not Resolved]
  - Anxiety [Not Recovered/Not Resolved]
  - End stage renal disease [Not Recovered/Not Resolved]
  - Spinal fracture [Not Recovered/Not Resolved]
  - Pain [Not Recovered/Not Resolved]
  - Osteoporosis [Not Recovered/Not Resolved]
  - Anhedonia [Not Recovered/Not Resolved]
  - Emotional distress [Not Recovered/Not Resolved]
  - Bone density decreased [Not Recovered/Not Resolved]

NARRATIVE: CASE EVENT DATE: 2015
